FAERS Safety Report 4664747-4 (Version None)
Quarter: 2005Q2

REPORT INFORMATION
  Report Type: 
  Country: None (occurrence: None)
  Receive Date: 20050518
  Receipt Date: 20050509
  Transmission Date: 20051028
  Serious: Yes (Hospitalization)
  Sender: FDA-Public Use
  Company Number: US-JNJFOC-20050502306

PATIENT
  Age: 43 Year
  Sex: Male

DRUGS (8)
  1. REMICADE [Suspect]
     Dosage: 4 DOSES
     Route: 042
  2. AZA [Concomitant]
  3. AZA [Concomitant]
  4. AZA [Concomitant]
  5. AZA [Concomitant]
  6. METHYLPREDNISOLONE [Concomitant]
  7. HYDROXYCHLOROQUINE SULFATE [Concomitant]
  8. TYLENOL (CAPLET) [Concomitant]

REACTIONS (1)
  - HISTOPLASMOSIS [None]
